FAERS Safety Report 12765770 (Version 1)
Quarter: 2016Q3

REPORT INFORMATION
  Report Type: Spontaneous
  Country: US (occurrence: US)
  Receive Date: 20160921
  Receipt Date: 20160921
  Transmission Date: 20161109
  Serious: No
  Sender: FDA-Public Use
  Company Number: US-JNJFOC-20160903574

PATIENT
  Age: 81 Year
  Sex: Female
  Weight: 50.35 kg

DRUGS (3)
  1. XARELTO [Suspect]
     Active Substance: RIVAROXABAN
     Indication: CEREBROVASCULAR ACCIDENT PROPHYLAXIS
     Route: 048
     Dates: start: 20160714
  2. XARELTO [Suspect]
     Active Substance: RIVAROXABAN
     Indication: ATRIAL FIBRILLATION
     Route: 048
     Dates: start: 20160714
  3. DOCUSATE [Concomitant]
     Active Substance: DOCUSATE
     Indication: ABNORMAL FAECES
     Route: 048

REACTIONS (2)
  - Constipation [Unknown]
  - Accidental overdose [Unknown]

NARRATIVE: CASE EVENT DATE: 20160902
